FAERS Safety Report 8073998-0 (Version None)
Quarter: 2012Q1

REPORT INFORMATION
  Report Type: 
  Country: None (occurrence: None)
  Receive Date: 20120126
  Receipt Date: 20120117
  Transmission Date: 20120608
  Serious: Yes (Hospitalization, Other)
  Sender: FDA-Public Use
  Company Number: US-ELI_LILLY_AND_COMPANY-US201201006319

PATIENT

DRUGS (8)
  1. GEMCITABINE HYDROCHLORIDE [Suspect]
     Indication: PELVIC NEOPLASM
     Dosage: UNK, ON DAY 2 AND 4 OF EACH 21 DAY CYCLE
  2. MESNA [Concomitant]
     Dosage: 400 MG/M2, 5 TIMES DAILY FOR 4 DAYS, EACH CYCLE
     Route: 042
  3. POTASSIUM CHLORIDE [Concomitant]
     Indication: PROPHYLAXIS
     Route: 042
  4. DOXORUBICIN HCL [Concomitant]
     Indication: PELVIC NEOPLASM
     Dosage: 20 MG/M2, DAILY FOR THREE DAYS OF EACH 21 DAY CYCLE
  5. IFOSFAMIDE [Concomitant]
     Indication: PELVIC NEOPLASM
     Dosage: 2 G/M2, DAILY FOR 4 DAYS EVERY 21 DAY CYCLE
  6. MAGNESIUM [Concomitant]
     Indication: PROPHYLAXIS
     Route: 042
  7. NEUPOGEN [Concomitant]
     Dosage: UNK, DAY 7 TO 12 OF EACH 21 DAY CYCLE
  8. ANTIEMETICS AND ANTINAUSEANTS [Concomitant]

REACTIONS (4)
  - BLOOD DISORDER [None]
  - DECREASED APPETITE [None]
  - ALOPECIA [None]
  - ASTHENIA [None]
